FAERS Safety Report 23763075 (Version 1)
Quarter: 2024Q2

REPORT INFORMATION
  Report Type: Spontaneous
  Country: US (occurrence: US)
  Receive Date: 20240419
  Receipt Date: 20240419
  Transmission Date: 20240715
  Serious: No
  Sender: FDA-Public Use
  Company Number: US-SANOFI-02016278

PATIENT
  Age: 66 Year
  Sex: Female

DRUGS (1)
  1. SOLIQUA 100/33 [Suspect]
     Active Substance: INSULIN GLARGINE\LIXISENATIDE
     Indication: Type 2 diabetes mellitus
     Dosage: 32 UNITS QD
     Route: 058
     Dates: start: 20240122

REACTIONS (2)
  - Blood glucose abnormal [Unknown]
  - Arthritis [Unknown]

NARRATIVE: CASE EVENT DATE: 20240101
